FAERS Safety Report 9898025 (Version 2)
Quarter: 2014Q1

REPORT INFORMATION
  Report Type: Spontaneous
  Country: US (occurrence: US)
  Receive Date: 20140214
  Receipt Date: 20140214
  Transmission Date: 20141002
  Serious: No
  Sender: FDA-Public Use
  Company Number: US-BAYER-2014-012653

PATIENT
  Age: 41 Year
  Sex: Female

DRUGS (2)
  1. GADAVIST [Suspect]
     Indication: NUCLEAR MAGNETIC RESONANCE IMAGING
     Dosage: 10 ML, AUTO INJECTION (1 ML/SEC)
     Dates: start: 20131231, end: 20131231
  2. PREDNISONE [Concomitant]

REACTIONS (1)
  - Pruritus generalised [Recovered/Resolved]
